FAERS Safety Report 23659885 (Version 1)
Quarter: 2024Q1

REPORT INFORMATION
  Report Type: Spontaneous
  Country: US (occurrence: US)
  Receive Date: 20240321
  Receipt Date: 20240321
  Transmission Date: 20240409
  Serious: No
  Sender: FDA-Public Use
  Company Number: US-SA-SAC20240318000914

PATIENT
  Age: 1 Year
  Sex: Male
  Weight: 11 kg

DRUGS (7)
  1. DUPIXENT [Suspect]
     Active Substance: DUPILUMAB
     Indication: Eczema
     Dosage: 200 MG;Q4W
     Route: 058
     Dates: start: 20230929
  2. ELIDEL [Concomitant]
     Active Substance: PIMECROLIMUS
     Dosage: UNK
  3. CHILDREN^S CETIRIZINE HYDROCHLORIDE [Concomitant]
     Dosage: UNK
  4. EPINEPHRINE [Concomitant]
     Active Substance: EPINEPHRINE
     Dosage: UNK
  5. FLUOCINONIDE [Concomitant]
     Active Substance: FLUOCINONIDE
     Dosage: UNK
  6. DERMAPHOR [Concomitant]
     Active Substance: PETROLATUM
     Dosage: UNK
  7. DERMA-SMOOTHE/FS [Concomitant]
     Active Substance: FLUOCINOLONE ACETONIDE
     Dosage: UNK

REACTIONS (9)
  - Rhinorrhoea [Unknown]
  - Drooling [Unknown]
  - Skin fissures [Not Recovered/Not Resolved]
  - Scratch [Unknown]
  - Dry skin [Unknown]
  - Nasopharyngitis [Unknown]
  - Erythema [Not Recovered/Not Resolved]
  - Eczema [Unknown]
  - Therapeutic response shortened [Unknown]

NARRATIVE: CASE EVENT DATE: 20231201
